FAERS Safety Report 8883583 (Version 2)
Quarter: 2012Q4

REPORT INFORMATION
  Report Type: 
  Country: JP (occurrence: JP)
  Receive Date: 20121102
  Receipt Date: 20121109
  Transmission Date: 20130627
  Serious: Yes (Other)
  Sender: FDA-Public Use
  Company Number: JP-SANOFI-AVENTIS-2012SA079350

PATIENT
  Age: 78 Year
  Sex: Male

DRUGS (5)
  1. PLAVIX [Suspect]
     Indication: DRUG USE FOR UNKNOWN INDICATION
     Route: 048
  2. BAYASPIRIN [Concomitant]
     Dosage: strength: 100mg
     Route: 048
  3. ENALAPRIL MALEATE [Concomitant]
     Route: 048
  4. LANSOPRAZOLE [Concomitant]
     Route: 048
  5. ATORVASTATIN [Concomitant]
     Route: 048

REACTIONS (3)
  - Interstitial lung disease [Unknown]
  - Renal impairment [Unknown]
  - Anaemia [Unknown]
